FAERS Safety Report 25660705 (Version 1)
Quarter: 2025Q3

REPORT INFORMATION
  Report Type: Spontaneous
  Country: US (occurrence: US)
  Receive Date: 20250808
  Receipt Date: 20250808
  Transmission Date: 20251020
  Serious: No
  Sender: ANI
  Company Number: US-ANIPHARMA-2024-US-066685

PATIENT
  Age: 50 Year
  Sex: Female

DRUGS (21)
  1. CORTICOTROPIN [Suspect]
     Active Substance: CORTICOTROPIN
     Indication: Polymyositis
  2. PREDNISONE [Concomitant]
     Active Substance: PREDNISONE
  3. SERTRALINE HYDROCHLORIDE [Concomitant]
     Active Substance: SERTRALINE HYDROCHLORIDE
  4. VALSARTAN [Concomitant]
     Active Substance: VALSARTAN
  5. ESOMEPRAZOLE MAGNESIUM [Concomitant]
     Active Substance: ESOMEPRAZOLE MAGNESIUM
  6. ATORVASTATIN CALCIUM [Concomitant]
     Active Substance: ATORVASTATIN CALCIUM
  7. ESTRING [Concomitant]
     Active Substance: ESTRADIOL
  8. HYDROXYCHLOROQUINE SULFATE [Concomitant]
     Active Substance: HYDROXYCHLOROQUINE SULFATE
  9. WELLBUTRIN XL [Concomitant]
     Active Substance: BUPROPION HYDROCHLORIDE
  10. POTASSIUM CITRATE [Concomitant]
     Active Substance: POTASSIUM CITRATE
  11. TRELEGY ELLIPTA [Concomitant]
     Active Substance: FLUTICASONE FUROATE\UMECLIDINIUM BROMIDE\VILANTEROL TRIFENATATE
  12. OZEMPIC [Concomitant]
     Active Substance: SEMAGLUTIDE
  13. NAPROXEN [Concomitant]
     Active Substance: NAPROXEN
  14. DRY EYE FORMULA [Concomitant]
  15. SPIRIVA [Concomitant]
     Active Substance: TIOTROPIUM BROMIDE MONOHYDRATE
  16. ADVIL [Concomitant]
     Active Substance: IBUPROFEN
  17. RITUXAN [Concomitant]
     Active Substance: RITUXIMAB
  18. DIAZEPAM [Concomitant]
     Active Substance: DIAZEPAM
  19. LAMOTRIGINE [Concomitant]
     Active Substance: LAMOTRIGINE
  20. ALBUTEROL [Concomitant]
     Active Substance: ALBUTEROL
  21. CAPLYTA [Concomitant]
     Active Substance: LUMATEPERONE

REACTIONS (2)
  - Bronchitis [Unknown]
  - Product dose omission issue [Unknown]

NARRATIVE: CASE EVENT DATE: 20241212
